FAERS Safety Report 10092490 (Version 1)
Quarter: 2014Q2

REPORT INFORMATION
  Report Type: Spontaneous
  Country: US (occurrence: US)
  Receive Date: 20140421
  Receipt Date: 20140421
  Transmission Date: 20141212
  Serious: No
  Sender: FDA-Public Use
  Company Number: US-SANOFI-AVENTIS-2013SA033316

PATIENT
  Age: 65 Year
  Sex: Male
  Weight: 81 kg

DRUGS (6)
  1. FEXOFENADINE HYDROCHLORIDE [Suspect]
     Indication: HYPERSENSITIVITY
     Dosage: STRENGTH: 180MG
     Route: 065
  2. ADVAIR [Concomitant]
     Indication: ASTHMA
     Dosage: DOSE- 50/ 500, FREQUENCY- 1 PUFF X 2
  3. OMEPRAZOLE [Concomitant]
     Indication: GASTROOESOPHAGEAL REFLUX DISEASE
  4. UNKNOWDRUG [Concomitant]
     Indication: BLOOD CHOLESTEROL
  5. LISINOPRIL [Concomitant]
     Indication: HYPERTENSION
  6. FLONASE [Concomitant]
     Indication: SINUS DISORDER
     Dosage: DOSE -50

REACTIONS (1)
  - Drug effect decreased [Unknown]
